FAERS Safety Report 12299651 (Version 2)
Quarter: 2016Q3

REPORT INFORMATION
  Report Type: Spontaneous
  Country: US (occurrence: US)
  Receive Date: 20160425
  Receipt Date: 20160705
  Transmission Date: 20161109
  Serious: No
  Sender: FDA-Public Use
  Company Number: US-PFIZER INC-2016223083

PATIENT
  Age: 72 Year
  Sex: Female
  Weight: 50 kg

DRUGS (4)
  1. BACLOFEN. [Concomitant]
     Active Substance: BACLOFEN
     Indication: MUSCLE SPASMS
     Dosage: 10 MG, 3X/DAY EVERY 8 HOURS
  2. ADVIL [Suspect]
     Active Substance: IBUPROFEN
     Dosage: 600MG OR 800MG IN THE AFTERNOON
     Route: 048
     Dates: start: 20160417
  3. EVOXAC [Concomitant]
     Active Substance: CEVIMELINE HYDROCHLORIDE
     Indication: DRY MOUTH
     Dosage: 30 MG BY MOUTH EVERY 4 TO 6 HOURS
     Route: 048
  4. ADVIL [Suspect]
     Active Substance: IBUPROFEN
     Indication: PAIN
     Dosage: 600 MG CRUSHED AND MIXED WITH APPLESAUCE IN THE EVENING
     Route: 048
     Dates: start: 20160416

REACTIONS (4)
  - Lip swelling [Not Recovered/Not Resolved]
  - Expired product administered [Unknown]
  - Extra dose administered [Unknown]
  - Speech disorder [Not Recovered/Not Resolved]

NARRATIVE: CASE EVENT DATE: 20160416
